FAERS Safety Report 8505779-5 (Version None)
Quarter: 2012Q3

REPORT INFORMATION
  Report Type: 
  Country: None (occurrence: None)
  Receive Date: 20120712
  Receipt Date: 20120709
  Transmission Date: 20120928
  Serious: Yes (Death, Hospitalization)
  Sender: FDA-Public Use
  Company Number: PHHY2012JP059161

PATIENT
  Age: 77 Year
  Sex: Female

DRUGS (6)
  1. PREDNISOLONE [Suspect]
     Indication: DERMATOMYOSITIS
     Dosage: 50 MG, DAILY
     Route: 048
  2. PREDNISOLONE [Suspect]
     Indication: INTERSTITIAL LUNG DISEASE
  3. CYCLOPHOSPHAMIDE [Suspect]
     Indication: DERMATOMYOSITIS
     Dosage: 500 MG, ONCE IN TWO WEEKS
  4. CYCLOSPORINE [Suspect]
     Indication: DERMATOMYOSITIS
     Dosage: 100 MG, DAILY
     Route: 048
  5. CYCLOPHOSPHAMIDE [Suspect]
     Indication: INTERSTITIAL LUNG DISEASE
  6. CYCLOSPORINE [Suspect]
     Indication: INTERSTITIAL LUNG DISEASE

REACTIONS (9)
  - ACUTE LUNG INJURY [None]
  - CYTOMEGALOVIRUS INFECTION [None]
  - DISEASE PROGRESSION [None]
  - CELL MARKER INCREASED [None]
  - DIFFUSE ALVEOLAR DAMAGE [None]
  - INTERSTITIAL LUNG DISEASE [None]
  - RALES [None]
  - ACUTE RESPIRATORY FAILURE [None]
  - ASPERGILLOSIS [None]
